FAERS Safety Report 21172659 (Version 5)
Quarter: 2023Q4

REPORT INFORMATION
  Report Type: Spontaneous
  Country: US (occurrence: US)
  Receive Date: 20220804
  Receipt Date: 20231228
  Transmission Date: 20240110
  Serious: No
  Sender: FDA-Public Use
  Company Number: US-PFIZER INC-PV202200035799

PATIENT
  Age: 86 Year
  Sex: Male

DRUGS (2)
  1. IBRANCE [Suspect]
     Active Substance: PALBOCICLIB
     Indication: Breast cancer male
     Dosage: WITH OR WITHOUT FOOD ON DAYS 1 -21 EVERY 28 DAY CYCLE
     Route: 048
     Dates: start: 20221212
  2. ANASTROZOLE [Concomitant]
     Active Substance: ANASTROZOLE
     Dosage: UNK

REACTIONS (4)
  - Fatigue [Unknown]
  - Memory impairment [Unknown]
  - Electric shock sensation [Unknown]
  - Hypoacusis [Unknown]
